FAERS Safety Report 9745594 (Version 4)
Quarter: 2014Q1

REPORT INFORMATION
  Report Type: Spontaneous
  Country: US (occurrence: US)
  Receive Date: 20131211
  Receipt Date: 20140110
  Transmission Date: 20141002
  Serious: No
  Sender: FDA-Public Use
  Company Number: US-PFIZER INC-2013352994

PATIENT
  Age: 50 Year
  Sex: Female
  Weight: 53.06 kg

DRUGS (11)
  1. LYRICA [Suspect]
     Indication: NEURALGIA
     Dosage: 50 MG, 2X/DAY
     Route: 048
     Dates: start: 20130918, end: 20131018
  2. LYRICA [Suspect]
     Dosage: 75 MG, UNK
  3. LYRICA [Suspect]
     Dosage: 100 MG, 2X/DAY
     Dates: start: 20131205, end: 20140105
  4. MOBIC [Concomitant]
     Indication: BACK PAIN
     Dosage: 15 MG, 1X/DAY
     Route: 048
     Dates: start: 20120921
  5. MOBIC [Concomitant]
     Indication: BACK PAIN
  6. SULINDAC [Concomitant]
     Dosage: 150 MG, 2X/DAY
     Route: 048
     Dates: start: 20121019
  7. HYDROCHLOROTHIAZIDE [Concomitant]
     Dosage: 25 MG, QAM
     Route: 048
     Dates: start: 20121019
  8. ROBAXIN [Concomitant]
     Dosage: 500 MG, 4X/DAY
     Route: 048
     Dates: start: 20121218
  9. ROBAXIN [Concomitant]
     Dosage: 500 MG, 2X/DAY
     Route: 048
     Dates: start: 20130806
  10. VISTARIL [Concomitant]
     Dosage: 25 MG, 4X/DAY
     Route: 048
     Dates: start: 20130806
  11. NORCO [Concomitant]
     Indication: PAIN
     Dosage: 325 MG-10 MG, Q6 HRS PRN
     Route: 048
     Dates: start: 20130910

REACTIONS (7)
  - Drug ineffective [Unknown]
  - Bronchitis [Unknown]
  - Dyspnoea [Unknown]
  - Neck pain [Unknown]
  - Back pain [Unknown]
  - Pain in extremity [Unknown]
  - Muscle spasms [Unknown]
